FAERS Safety Report 22321865 (Version 1)
Quarter: 2023Q2

REPORT INFORMATION
  Report Type: Report from Study
  Country: BE (occurrence: BE)
  Receive Date: 20230516
  Receipt Date: 20230516
  Transmission Date: 20230721
  Serious: Yes (Hospitalization, Disabling, Other)
  Sender: FDA-Public Use
  Company Number: BE-IPSEN Group, Research and Development-2023-08901

PATIENT

DRUGS (7)
  1. CABOMETYX [Suspect]
     Active Substance: CABOZANTINIB S-MALATE
     Indication: Renal cell carcinoma
     Dosage: 60 MG, QD
     Route: 048
     Dates: start: 20230220, end: 20230319
  2. CABOMETYX [Suspect]
     Active Substance: CABOZANTINIB S-MALATE
     Dosage: UNK QD
     Route: 048
     Dates: start: 20230320, end: 20230322
  3. CABOMETYX [Suspect]
     Active Substance: CABOZANTINIB S-MALATE
     Dosage: 40 MG, QD
     Route: 048
     Dates: start: 20230323, end: 20230420
  4. CABOMETYX [Suspect]
     Active Substance: CABOZANTINIB S-MALATE
     Dosage: UNK , QD
     Route: 048
     Dates: start: 20230421
  5. AMOXICILLIN\CLAVULANIC ACID [Concomitant]
     Active Substance: AMOXICILLIN\CLAVULANIC ACID
     Indication: Mouth haemorrhage
     Dosage: 875/125 MG 3 TIMES PER DAY
     Route: 048
     Dates: start: 20230317, end: 20230323
  6. TRANEXAMIC ACID [Concomitant]
     Active Substance: TRANEXAMIC ACID
     Indication: Mouth haemorrhage
     Dosage: TWICE PER WEEK
     Route: 048
     Dates: start: 20230317, end: 20230322
  7. HEPARIN [Concomitant]
     Active Substance: HEPARIN SODIUM
     Dosage: 14000 OTHER UNITS
     Route: 058
     Dates: start: 20230319

REACTIONS (2)
  - Quality of life decreased [Not Recovered/Not Resolved]
  - Pulmonary embolism [Recovered/Resolved]

NARRATIVE: CASE EVENT DATE: 20230319
